FAERS Safety Report 20035972 (Version 1)
Quarter: 2021Q4

REPORT INFORMATION
  Report Type: Spontaneous
  Country: IT (occurrence: IT)
  Receive Date: 20211105
  Receipt Date: 20211105
  Transmission Date: 20220303
  Serious: Yes (Hospitalization, Other)
  Sender: FDA-Public Use
  Company Number: IT-ITALFARMACO-2021-001173

PATIENT
  Age: 52 Year
  Sex: Female

DRUGS (15)
  1. ZOLPIDEM [Suspect]
     Active Substance: ZOLPIDEM TARTRATE
     Indication: Insomnia
     Dosage: 450 MILLIGRAM, ONCE A DAY
     Route: 048
  2. ZOLPIDEM [Suspect]
     Active Substance: ZOLPIDEM TARTRATE
     Dosage: 10 MILLIGRAM, ONCE A DAY
     Route: 065
  3. ZOLPIDEM [Suspect]
     Active Substance: ZOLPIDEM TARTRATE
     Dosage: 150 UNK
     Route: 065
  4. PREGABALIN [Concomitant]
     Active Substance: PREGABALIN
     Indication: Psychomotor hyperactivity
  5. PREGABALIN [Concomitant]
     Active Substance: PREGABALIN
     Indication: Euphoric mood
  6. PREGABALIN [Concomitant]
     Active Substance: PREGABALIN
     Indication: Withdrawal syndrome
  7. BUPROPION [Concomitant]
     Active Substance: BUPROPION
     Indication: Psychomotor hyperactivity
  8. BUPROPION [Concomitant]
     Active Substance: BUPROPION
     Indication: Euphoric mood
  9. BUPROPION [Concomitant]
     Active Substance: BUPROPION
     Indication: Withdrawal syndrome
  10. TRAZODONE [Concomitant]
     Active Substance: TRAZODONE HYDROCHLORIDE
     Indication: Psychomotor hyperactivity
  11. TRAZODONE [Concomitant]
     Active Substance: TRAZODONE HYDROCHLORIDE
     Indication: Euphoric mood
  12. TRAZODONE [Concomitant]
     Active Substance: TRAZODONE HYDROCHLORIDE
     Indication: Withdrawal syndrome
  13. DIAZEPAM [Concomitant]
     Active Substance: DIAZEPAM
     Indication: Psychomotor hyperactivity
  14. DIAZEPAM [Concomitant]
     Active Substance: DIAZEPAM
     Indication: Euphoric mood
  15. DIAZEPAM [Concomitant]
     Active Substance: DIAZEPAM
     Indication: Withdrawal syndrome

REACTIONS (11)
  - Drug abuse [Unknown]
  - Psychomotor hyperactivity [Unknown]
  - Euphoric mood [Unknown]
  - Withdrawal syndrome [Unknown]
  - Drug dependence [Unknown]
  - Intentional product misuse [Unknown]
  - Vertigo [Unknown]
  - Anger [Unknown]
  - Irritability [Unknown]
  - Tremor [Unknown]
  - Drug tolerance [Unknown]
